FAERS Safety Report 5580694-8 (Version None)
Quarter: 2008Q1

REPORT INFORMATION
  Report Type: 
  Country: None (occurrence: None)
  Receive Date: 20080103
  Receipt Date: 20071225
  Transmission Date: 20080703
  Serious: Yes (Other)
  Sender: FDA-Public Use
  Company Number: JP-PFIZER INC-2007108113

PATIENT
  Age: 43 Year
  Sex: Female

DRUGS (1)
  1. ZITHROMAX [Suspect]
     Route: 048

REACTIONS (1)
  - RENAL DISORDER [None]
